FAERS Safety Report 5115781-1 (Version None)
Quarter: 2006Q3

REPORT INFORMATION
  Report Type: 
  Country: None (occurrence: None)
  Receive Date: 20060926
  Receipt Date: 20060926
  Transmission Date: 20061208
  Serious: Yes (Hospitalization)
  Sender: FDA-Public Use
  Company Number: None

PATIENT
  Sex: Female
  Weight: 79.3 kg

DRUGS (3)
  1. GEMZAR [Suspect]
     Indication: EWING'S SARCOMA
     Dosage: 1340MG DAY 1 AND DAY 8 IV
     Route: 042
     Dates: start: 20060921, end: 20060921
  2. OXYCODONE HCL [Concomitant]
  3. OMPAZINE [Concomitant]

REACTIONS (4)
  - ARTHRALGIA [None]
  - CONSTIPATION [None]
  - NAUSEA [None]
  - PNEUMONIA [None]
